FAERS Safety Report 6191521-2 (Version None)
Quarter: 2009Q2

REPORT INFORMATION
  Report Type: 
  Country: None (occurrence: None)
  Receive Date: 20090513
  Receipt Date: 20090305
  Transmission Date: 20091009
  Serious: Yes (Hospitalization)
  Sender: FDA-Public Use
  Company Number: CH-GENENTECH-278106

PATIENT
  Sex: Female

DRUGS (3)
  1. BEVACIZUMAB [Suspect]
     Indication: METASTATIC MALIGNANT MELANOMA
     Dosage: 600 MG, UNK
     Route: 042
     Dates: start: 20090127
  2. TEMOZOLOMIDE [Suspect]
     Indication: METASTATIC MALIGNANT MELANOMA
     Dosage: 250 MG, UNK
     Route: 048
     Dates: start: 20090127
  3. RADIATION [Concomitant]
     Indication: METASTATIC MALIGNANT MELANOMA
     Dosage: 4 GY, UNK
     Dates: start: 20090119, end: 20090123

REACTIONS (1)
  - PAIN IN EXTREMITY [None]
